FAERS Safety Report 12435742 (Version 1)
Quarter: 2016Q2

REPORT INFORMATION
  Report Type: Spontaneous
  Country: US (occurrence: US)
  Receive Date: 20160603
  Receipt Date: 20160603
  Transmission Date: 20160815
  Serious: No
  Sender: FDA-Public Use
  Company Number: US-ROCHE-1706774

PATIENT
  Age: 8 Year
  Sex: Male

DRUGS (1)
  1. ACTEMRA [Suspect]
     Active Substance: TOCILIZUMAB
     Indication: AUTOIMMUNE DISORDER
     Route: 058
     Dates: start: 20150618

REACTIONS (2)
  - Mood swings [Unknown]
  - Headache [Unknown]

NARRATIVE: CASE EVENT DATE: 20160127
